FAERS Safety Report 16539156 (Version 1)
Quarter: 2019Q3

REPORT INFORMATION
  Report Type: Spontaneous
  Country: US (occurrence: US)
  Receive Date: 20190708
  Receipt Date: 20190708
  Transmission Date: 20191004
  Serious: Yes (Other)
  Sender: FDA-Public Use
  Company Number: US-PFIZER INC-2019287219

PATIENT
  Age: 44 Year
  Sex: Female

DRUGS (1)
  1. GABAPENTIN. [Suspect]
     Active Substance: GABAPENTIN
     Dosage: 100 MG, UNK
     Dates: start: 20150904

REACTIONS (5)
  - Neuralgia [Unknown]
  - Cerebrovascular accident [Unknown]
  - Hyperhidrosis [Unknown]
  - Rash [Unknown]
  - Injury [Unknown]

NARRATIVE: CASE EVENT DATE: 20150925
